FAERS Safety Report 22334546 (Version 1)
Quarter: 2023Q2

REPORT INFORMATION
  Report Type: Spontaneous
  Country: US (occurrence: None)
  Receive Date: 20230517
  Receipt Date: 20230517
  Transmission Date: 20230721
  Serious: No
  Sender: FDA-Public Use
  Company Number: US-ROCHE-3107913

PATIENT
  Sex: Female

DRUGS (1)
  1. ACTEMRA [Suspect]
     Active Substance: TOCILIZUMAB
     Indication: Giant cell arteritis
     Dosage: FORM STRENGTH: 162 MG/0.9 M
     Route: 058
     Dates: start: 202201

REACTIONS (2)
  - Injection site pruritus [Unknown]
  - Injection site erythema [Unknown]
